FAERS Safety Report 10241217 (Version 1)
Quarter: 2014Q2

REPORT INFORMATION
  Report Type: Spontaneous
  Country: US (occurrence: US)
  Receive Date: 20140617
  Receipt Date: 20140617
  Transmission Date: 20141212
  Serious: No
  Sender: FDA-Public Use
  Company Number: US-ASTRAZENECA-2014SE40018

PATIENT
  Sex: Female

DRUGS (1)
  1. OMEPRAZOLE [Suspect]
     Indication: OESOPHAGEAL PAIN
     Route: 048
     Dates: start: 201406

REACTIONS (2)
  - Oesophageal pain [Unknown]
  - Oesophageal disorder [Not Recovered/Not Resolved]
